FAERS Safety Report 8236485-2 (Version None)
Quarter: 2012Q1

REPORT INFORMATION
  Report Type: 
  Country: None (occurrence: None)
  Receive Date: 20120327
  Receipt Date: 20120319
  Transmission Date: 20120608
  Serious: Yes (Hospitalization, Other)
  Sender: FDA-Public Use
  Company Number: US-BAYER-2011-107437

PATIENT
  Age: 30 Year
  Sex: Female
  Weight: 83 kg

DRUGS (9)
  1. DROSPIRENONE AND ETHINYL ESTRADIOL [Suspect]
     Indication: ACNE
     Dosage: UNK
     Dates: start: 20081028, end: 20091015
  2. ALDOSTERONE [Concomitant]
     Dosage: UNK
     Dates: start: 20010101
  3. ANTIBIOTICS [Concomitant]
     Indication: ABDOMINAL PAIN UPPER
     Dosage: UNK
     Dates: start: 20100210
  4. YAZ [Suspect]
     Indication: ACNE
     Dosage: UNK
     Dates: start: 20081028, end: 20091015
  5. VITAMIN TAB [Concomitant]
     Dosage: UNK
     Dates: start: 20100113
  6. SPIRONOLACTONE [Concomitant]
     Dosage: UNK
     Dates: start: 20020101, end: 20090101
  7. ALDACTONE [POTASSIUM CANRENOATE] [Concomitant]
     Dosage: UNK
     Dates: start: 20050101
  8. MAXALT [Concomitant]
     Dosage: UNK
     Dates: start: 20100101
  9. METFORMIN HCL [Concomitant]
     Dosage: UNK
     Dates: start: 20090101

REACTIONS (6)
  - CHOLECYSTITIS CHRONIC [None]
  - GALLBLADDER ABSCESS [None]
  - PAIN [None]
  - CHOLELITHIASIS [None]
  - ABDOMINAL PAIN [None]
  - ABDOMINAL PAIN UPPER [None]
